FAERS Safety Report 11794232 (Version 1)
Quarter: 2015Q4

REPORT INFORMATION
  Report Type: Spontaneous
  Country: DE (occurrence: DE)
  Receive Date: 20151202
  Receipt Date: 20151202
  Transmission Date: 20160305
  Serious: Yes (Other)
  Sender: FDA-Public Use
  Company Number: GXKR2015DE005237

PATIENT
  Age: 30 Year
  Sex: Female
  Weight: 67 kg

DRUGS (7)
  1. VENLAFAXINE [Suspect]
     Active Substance: VENLAFAXINE HYDROCHLORIDE
     Indication: DEPRESSION
     Dosage: INITIAL.37.5 MG/D UP TO 75 MG/D
     Route: 048
     Dates: start: 20141031, end: 20150726
  2. FOLIO FORTE [Concomitant]
     Active Substance: FOLIC ACID\VITAMINS
     Indication: PROPHYLAXIS OF NEURAL TUBE DEFECT
     Dosage: 0.8 MG, QD
     Route: 048
     Dates: start: 20141031, end: 20150726
  3. BUSCOPAN [Concomitant]
     Active Substance: BUTYLSCOPOLAMINE BROMIDE
     Indication: NEPHROLITHIASIS
     Dosage: UNK
     Route: 042
     Dates: start: 20150514, end: 20150515
  4. IBUPROFEN. [Concomitant]
     Active Substance: IBUPROFEN
     Indication: HEADACHE
     Dosage: 400 MG, PRN
     Route: 048
  5. EUTHYROX [Concomitant]
     Active Substance: LEVOTHYROXINE SODIUM
     Indication: HYPOTHYROIDISM
     Dosage: 100 UG, QD
     Route: 048
     Dates: start: 20141031, end: 20150726
  6. MEPTID [Concomitant]
     Active Substance: MEPTAZINOL HYDROCHLORIDE
     Indication: NEPHROLITHIASIS
     Dosage: UNK
     Route: 042
     Dates: start: 20150514, end: 20150515
  7. PERFALGAN [Concomitant]
     Active Substance: ACETAMINOPHEN
     Indication: NEPHROLITHIASIS
     Dosage: UNK
     Route: 042
     Dates: start: 20150515, end: 20150515

REACTIONS (2)
  - Premature rupture of membranes [Unknown]
  - Meconium in amniotic fluid [Unknown]
